FAERS Safety Report 18881785 (Version 1)
Quarter: 2021Q1

REPORT INFORMATION
  Report Type: Spontaneous
  Country: US (occurrence: US)
  Receive Date: 20210211
  Receipt Date: 20210211
  Transmission Date: 20210420
  Serious: Yes (Hospitalization, Other)
  Sender: FDA-Public Use
  Company Number: US-NOVOPROD-785732

PATIENT
  Sex: Female

DRUGS (3)
  1. METFORMIN [Concomitant]
     Active Substance: METFORMIN HYDROCHLORIDE
     Indication: PRODUCT USED FOR UNKNOWN INDICATION
     Dosage: UNK
     Route: 065
  2. LEVEMIR [Suspect]
     Active Substance: INSULIN DETEMIR
     Indication: PRODUCT USED FOR UNKNOWN INDICATION
     Dosage: 90 IU, BID
     Route: 058
  3. NOVOLOG [Suspect]
     Active Substance: INSULIN ASPART
     Indication: PRODUCT USED FOR UNKNOWN INDICATION
     Dosage: 50 UNIT 3?4 TIMES A DAY
     Route: 058

REACTIONS (12)
  - Severe acute respiratory syndrome [Unknown]
  - Gastric haemorrhage [Unknown]
  - Pneumonia pseudomonal [Unknown]
  - Anaemia [Unknown]
  - Breast cancer [Unknown]
  - Macular degeneration [Unknown]
  - H1N1 influenza [Unknown]
  - Influenza [Unknown]
  - Injection site atrophy [Unknown]
  - Rheumatoid arthritis [Unknown]
  - Renal failure [Unknown]
  - Injection site discolouration [Not Recovered/Not Resolved]

NARRATIVE: CASE EVENT DATE: 202003
